FAERS Safety Report 4357263-0 (Version None)
Quarter: 2004Q2

REPORT INFORMATION
  Report Type: 
  Country: None (occurrence: None)
  Receive Date: 20040513
  Receipt Date: 20040503
  Transmission Date: 20050107
  Serious: Yes (Death, Other)
  Sender: FDA-Public Use
  Company Number: 200414759GDDC

PATIENT
  Age: 69 Year
  Sex: Male

DRUGS (6)
  1. DOCETAXEL [Suspect]
     Indication: NON-SMALL CELL LUNG CANCER
     Route: 042
     Dates: start: 19971001
  2. CARBOPLATIN [Suspect]
     Indication: NON-SMALL CELL LUNG CANCER
     Dosage: DOSE: AUC 7.5
     Route: 042
     Dates: start: 19971001
  3. RADIOTHERAPY [Suspect]
     Indication: NON-SMALL CELL LUNG CANCER
     Dosage: DOSE: 50.4 GY TO MEDIASTINUM; 45 GY TO SUPRACLAVICULAR REGION
     Dates: start: 19980301, end: 19980501
  4. NEUPOGEN [Concomitant]
  5. PYRIDOSTIGMIN [Concomitant]
     Dates: start: 19991001, end: 20001201
  6. AZATHIOPRINE [Concomitant]
     Dosage: DOSE: 150 MG DIE (CUMULATIVE DOSE 69 G)
     Dates: start: 19991001, end: 20001201

REACTIONS (6)
  - ACUTE MYELOID LEUKAEMIA [None]
  - INFECTION [None]
  - MYASTHENIA GRAVIS [None]
  - MYELODYSPLASTIC SYNDROME [None]
  - NORMOCHROMIC NORMOCYTIC ANAEMIA [None]
  - SHIFT TO THE LEFT [None]
